FAERS Safety Report 7756934-3 (Version None)
Quarter: 2011Q3

REPORT INFORMATION
  Report Type: 
  Country: None (occurrence: None)
  Receive Date: 20110916
  Receipt Date: 20110909
  Transmission Date: 20111222
  Serious: Yes (Life-Threatening, Hospitalization)
  Sender: FDA-Public Use
  Company Number: FR-GLAXOSMITHKLINE-B0746122A

PATIENT
  Sex: Female

DRUGS (18)
  1. CHLORMADINONE ACETATE TAB [Suspect]
     Indication: PRODUCT USED FOR UNKNOWN INDICATION
     Dosage: 10MG PER DAY
     Route: 048
     Dates: start: 20110201, end: 20110314
  2. OROMONE [Suspect]
     Indication: PRODUCT USED FOR UNKNOWN INDICATION
     Dosage: 2MG PER DAY
     Route: 048
     Dates: start: 20110201, end: 20110314
  3. LOCERYL [Concomitant]
     Route: 065
     Dates: end: 20110301
  4. XANAX [Concomitant]
     Route: 065
  5. TERCIAN [Suspect]
     Indication: MENTAL DISORDER
     Dosage: 112.5MG PER DAY
     Route: 048
     Dates: start: 20110125, end: 20110314
  6. LANSOYL [Concomitant]
     Route: 065
     Dates: end: 20110301
  7. MAGNE B6 [Concomitant]
     Route: 065
     Dates: end: 20110301
  8. LEPTICUR [Suspect]
     Indication: PRODUCT USED FOR UNKNOWN INDICATION
     Dosage: 10MG PER DAY
     Route: 048
     Dates: start: 20110215, end: 20110314
  9. LYRICA [Concomitant]
     Route: 065
  10. ESCITALOPRAM OXALATE [Suspect]
     Indication: DEPRESSION
     Dosage: 15MG PER DAY
     Route: 048
     Dates: start: 20110125, end: 20110314
  11. NOCTAMIDE [Concomitant]
     Route: 065
     Dates: end: 20110301
  12. HEPTAMYL [Concomitant]
     Route: 065
     Dates: end: 20110301
  13. TEGRETOL [Concomitant]
     Route: 065
     Dates: start: 20101201, end: 20110201
  14. CARDIOCALM [Concomitant]
     Route: 065
     Dates: end: 20110301
  15. BETAMETHASONE VALERATE [Suspect]
     Indication: PRODUCT USED FOR UNKNOWN INDICATION
     Route: 061
     Dates: start: 20110125, end: 20110314
  16. IXEL [Concomitant]
     Route: 065
  17. ACETAMINOPHEN [Concomitant]
     Route: 065
  18. DESLORATADINE [Concomitant]
     Route: 065
     Dates: end: 20110301

REACTIONS (8)
  - SEPTIC SHOCK [None]
  - CELLULITIS [None]
  - RESPIRATORY DISORDER [None]
  - HYPERTHERMIA [None]
  - SEPSIS [None]
  - AGRANULOCYTOSIS [None]
  - BONE MARROW FAILURE [None]
  - BACTERAEMIA [None]
